FAERS Safety Report 16492209 (Version 1)
Quarter: 2019Q2

REPORT INFORMATION
  Report Type: Spontaneous
  Country: US (occurrence: US)
  Receive Date: 20190628
  Receipt Date: 20190628
  Transmission Date: 20190711
  Serious: No
  Sender: FDA-Public Use
  Company Number: US-GALDERMA-US19015278

PATIENT
  Age: 15 Year
  Sex: Female

DRUGS (11)
  1. PROACTIV DETOX HYDROGEL FACE MASK [Concomitant]
     Indication: SENSITIVE SKIN
     Route: 061
     Dates: start: 20190228, end: 20190301
  2. PROACTIV REPAIRING TREATMENT [Concomitant]
     Active Substance: BENZOYL PEROXIDE
     Indication: SENSITIVE SKIN
     Route: 061
     Dates: start: 20190228, end: 20190301
  3. PROACTIV MD ADAPALENE ACNE TREATMENT [Suspect]
     Active Substance: ADAPALENE
     Indication: SENSITIVE SKIN
     Dosage: 0.1%
     Route: 061
     Dates: start: 20190228, end: 20190301
  4. PROACTIV MD DEEP CLEANSING FACE WASH [Concomitant]
     Active Substance: COSMETICS
     Indication: SENSITIVE SKIN
     Route: 061
     Dates: start: 20190228, end: 20190301
  5. PROACTIV REVITALIZING TONER [Concomitant]
     Active Substance: COSMETICS
     Indication: SENSITIVE SKIN
     Route: 061
     Dates: start: 20190228, end: 20190301
  6. PROACTIV MD DAILY OIL CONTROL SPF 30 [Suspect]
     Active Substance: AVOBENZONE\OCTISALATE\OCTOCRYLENE
     Indication: SENSITIVE SKIN
     Route: 061
     Dates: start: 20190228, end: 20190301
  7. PROACTIV ADVANCED DAILY OIL CONTROL [Concomitant]
     Active Substance: SALICYLIC ACID
     Indication: SENSITIVE SKIN
     Route: 061
     Dates: start: 20190228, end: 20190301
  8. PROACTIV SOLUTION BLACKHEAD DISSOLVING [Concomitant]
     Active Substance: SALICYLIC ACID
     Indication: SENSITIVE SKIN
     Route: 061
     Dates: start: 20190228, end: 20190301
  9. PROACTIV RENEWING CLEANSER [Concomitant]
     Active Substance: BENZOYL PEROXIDE
     Indication: SENSITIVE SKIN
     Route: 061
     Dates: start: 20190228, end: 20190301
  10. PROACTIV DEEP CLEANSING WASH [Concomitant]
     Active Substance: SALICYLIC ACID
     Indication: SENSITIVE SKIN
     Route: 061
     Dates: start: 20190228, end: 20190301
  11. PROACTIV GREEN TEA MOISTURIZER [Concomitant]
     Active Substance: COSMETICS
     Indication: SENSITIVE SKIN
     Route: 061
     Dates: start: 20190228, end: 20190301

REACTIONS (6)
  - Skin exfoliation [Recovered/Resolved]
  - Product use in unapproved indication [Recovered/Resolved]
  - Dry skin [Recovered/Resolved]
  - Inappropriate schedule of product administration [Recovered/Resolved]
  - Erythema [Recovered/Resolved]
  - Overdose [Recovered/Resolved]

NARRATIVE: CASE EVENT DATE: 20190228
